FAERS Safety Report 19555426 (Version 1)
Quarter: 2021Q3

REPORT INFORMATION
  Report Type: Spontaneous
  Country: BR (occurrence: BR)
  Receive Date: 20210715
  Receipt Date: 20210715
  Transmission Date: 20211014
  Serious: Yes (Other)
  Sender: FDA-Public Use
  Company Number: BR-TOPROL-2021000140

PATIENT
  Sex: Female

DRUGS (1)
  1. SELOZOK [Suspect]
     Active Substance: METOPROLOL SUCCINATE
     Route: 048

REACTIONS (5)
  - Abdominal pain upper [Unknown]
  - Nasopharyngitis [Unknown]
  - Headache [Unknown]
  - Product taste abnormal [Unknown]
  - Suspected COVID-19 [Unknown]
